FAERS Safety Report 18280063 (Version 22)
Quarter: 2022Q1

REPORT INFORMATION
  Report Type: Report from Study
  Country: US (occurrence: US)
  Receive Date: 20200917
  Receipt Date: 20220112
  Transmission Date: 20220424
  Serious: Yes (Death, Hospitalization, Other)
  Sender: FDA-Public Use
  Company Number: US-NOVARTISPH-NVSC2020US254559

PATIENT
  Age: 63 Year
  Sex: Female
  Weight: 60.317 kg

DRUGS (12)
  1. TREPROSTINIL [Suspect]
     Active Substance: TREPROSTINIL
     Indication: Pulmonary arterial hypertension
     Dosage: UNK(10 NG/KG/MIN) CONT
     Route: 042
     Dates: start: 20200911
  2. TREPROSTINIL [Suspect]
     Active Substance: TREPROSTINIL
     Dosage: UNK, CONT (75 NG/KG/MIN, (STRENGTH: 2.5 MG/ML)
     Route: 042
  3. TREPROSTINIL [Suspect]
     Active Substance: TREPROSTINIL
     Dosage: UNK, CONT (56 NG/KG/MIN, )
     Route: 042
  4. TREPROSTINIL [Suspect]
     Active Substance: TREPROSTINIL
     Dosage: UNK (20 NG/KG/MIN)
     Route: 042
  5. TREPROSTINIL [Suspect]
     Active Substance: TREPROSTINIL
     Dosage: UNK (30 NG/KG/MIN)
     Route: 065
  6. TREPROSTINIL [Suspect]
     Active Substance: TREPROSTINIL
     Dosage: UNK CONT(39 NG/KG/MIN, )
     Route: 042
  7. TREPROSTINIL [Suspect]
     Active Substance: TREPROSTINIL
     Dosage: UNK (51 NG/KG/MIN, TREPROSTINIL 2.5MG/ML,)
     Route: 042
  8. TREPROSTINIL [Suspect]
     Active Substance: TREPROSTINIL
     Dosage: UNK (50 NG/KG/MIN, TREPROSTINIL 2.5MG/ML)
     Route: 042
  9. TREPROSTINIL [Suspect]
     Active Substance: TREPROSTINIL
     Dosage: UNK CONT, (75 NG/KG/MIN, )
     Route: 042
  10. TREPROSTINIL [Suspect]
     Active Substance: TREPROSTINIL
     Dosage: UNK, CONT(75 NG/KG/MIN, (STRENGTH: 2.5MG/ML)CONT
     Route: 042
  11. TREPROSTINIL [Suspect]
     Active Substance: TREPROSTINIL
     Dosage: UNK (75 NG/KG/MIN CONT
     Route: 042
     Dates: start: 20201109
  12. SILDENAFIL CITRATE [Concomitant]
     Active Substance: SILDENAFIL CITRATE
     Indication: Product used for unknown indication
     Dosage: UNK
     Route: 065

REACTIONS (25)
  - Death [Fatal]
  - Fungal infection [Unknown]
  - Scleroderma [Unknown]
  - Cellulitis [Unknown]
  - Feeling abnormal [Unknown]
  - Dyspnoea [Unknown]
  - Dyspepsia [Recovered/Resolved]
  - Back pain [Unknown]
  - Urinary tract infection [Unknown]
  - Skin irritation [Unknown]
  - Anaemia [Unknown]
  - Pain [Unknown]
  - Infection [Unknown]
  - Memory impairment [Unknown]
  - Illness [Unknown]
  - Localised infection [Unknown]
  - Muscle spasms [Unknown]
  - Platelet count decreased [Unknown]
  - Myalgia [Unknown]
  - Pain in extremity [Unknown]
  - Fatigue [Unknown]
  - Headache [Unknown]
  - Pain in jaw [Unknown]
  - Herpes zoster [Unknown]
  - Infusion site discharge [Unknown]

NARRATIVE: CASE EVENT DATE: 20220106
